FAERS Safety Report 4365749-8 (Version None)
Quarter: 2004Q2

REPORT INFORMATION
  Report Type: 
  Country: None (occurrence: None)
  Receive Date: 20040527
  Receipt Date: 20040510
  Transmission Date: 20050107
  Serious: Yes (Hospitalization)
  Sender: FDA-Public Use
  Company Number: 200411500EU

PATIENT
  Age: 66 Year
  Sex: Female
  Weight: 62.9 kg

DRUGS (3)
  1. DOCETAXEL [Suspect]
     Indication: BREAST CANCER
     Route: 042
     Dates: start: 20040217, end: 20040217
  2. TRASTUZUMAB [Suspect]
     Indication: BREAST CANCER
     Route: 042
     Dates: start: 20040217, end: 20040217
  3. OMEPRAZOLE [Concomitant]

REACTIONS (5)
  - FEBRILE NEUTROPENIA [None]
  - INFECTION [None]
  - LYMPHANGITIS [None]
  - ODYNOPHAGIA [None]
  - OESOPHAGITIS [None]
